FAERS Safety Report 17189050 (Version 1)
Quarter: 2019Q4

REPORT INFORMATION
  Report Type: Spontaneous
  Country: US (occurrence: US)
  Receive Date: 20191223
  Receipt Date: 20191223
  Transmission Date: 20200122
  Serious: No
  Sender: FDA-Public Use
  Company Number: US-GLAXOSMITHKLINE-US2019231457

PATIENT
  Sex: Female

DRUGS (1)
  1. ABREVA [Suspect]
     Active Substance: DOCOSANOL
     Indication: ORAL HERPES
     Dosage: UNK (ABOUT 4-5 TIMES A DAY)

REACTIONS (4)
  - Application site erythema [Unknown]
  - Incorrect product administration duration [Unknown]
  - Application site irritation [Unknown]
  - Inappropriate schedule of product administration [Unknown]
